FAERS Safety Report 9161116 (Version 1)
Quarter: 2013Q1

REPORT INFORMATION
  Report Type: Spontaneous
  Country: KR (occurrence: KR)
  Receive Date: 20130313
  Receipt Date: 20130313
  Transmission Date: 20140127
  Serious: Yes (Other)
  Sender: FDA-Public Use
  Company Number: PHHY2013KR023847

PATIENT
  Age: 8 Year
  Sex: Male

DRUGS (1)
  1. METHOTREXATE [Suspect]

REACTIONS (7)
  - Posterior reversible encephalopathy syndrome [Recovering/Resolving]
  - Convulsion [Recovered/Resolved]
  - Headache [Recovered/Resolved]
  - Vomiting [Not Recovered/Not Resolved]
  - Hallucination [Unknown]
  - Hypertension [Unknown]
  - Leukoencephalopathy [Not Recovered/Not Resolved]
